FAERS Safety Report 23555824 (Version 1)
Quarter: 2024Q1

REPORT INFORMATION
  Report Type: Spontaneous
  Country: US (occurrence: US)
  Receive Date: 20240222
  Receipt Date: 20240222
  Transmission Date: 20240410
  Serious: No
  Sender: FDA-Public Use
  Company Number: US-NOVOPROD-1106655

PATIENT

DRUGS (3)
  1. VICTOZA [Suspect]
     Active Substance: LIRAGLUTIDE
     Indication: Overweight
     Dosage: UNK
  2. VICTOZA [Suspect]
     Active Substance: LIRAGLUTIDE
     Indication: Glucose tolerance impaired
  3. VICTOZA [Suspect]
     Active Substance: LIRAGLUTIDE
     Indication: Blood cholesterol increased

REACTIONS (2)
  - Adverse drug reaction [Unknown]
  - Off label use [Unknown]
